FAERS Safety Report 8392592-5 (Version None)
Quarter: 2012Q2

REPORT INFORMATION
  Report Type: 
  Country: None (occurrence: None)
  Receive Date: 20120529
  Receipt Date: 20120523
  Transmission Date: 20120825
  Serious: Yes (Hospitalization, Other)
  Sender: FDA-Public Use
  Company Number: BR-ABBOTT-12P-020-0929636-00

PATIENT
  Age: 66 Year
  Sex: Female
  Weight: 65 kg

DRUGS (4)
  1. PREDNISONE [Concomitant]
     Indication: PRODUCT USED FOR UNKNOWN INDICATION
     Dates: start: 20070101
  2. FOLIC ACID [Concomitant]
     Indication: PRODUCT USED FOR UNKNOWN INDICATION
  3. HUMIRA [Suspect]
     Indication: RHEUMATOID ARTHRITIS
     Dates: start: 20040101, end: 20120423
  4. METHOTREXATE [Concomitant]
     Indication: PRODUCT USED FOR UNKNOWN INDICATION
     Dates: start: 20070101

REACTIONS (11)
  - BREAST CANCER [None]
  - VIRAL INFECTION [None]
  - ORAL CANDIDIASIS [None]
  - WEIGHT DECREASED [None]
  - METASTASES TO LUNG [None]
  - PYREXIA [None]
  - BEDRIDDEN [None]
  - PULMONARY OEDEMA [None]
  - DYSPNOEA [None]
  - HYPOPHAGIA [None]
  - PLEURAL EFFUSION [None]
